FAERS Safety Report 12521800 (Version 1)
Quarter: 2016Q3

REPORT INFORMATION
  Report Type: Spontaneous
  Country: US (occurrence: US)
  Receive Date: 20160701
  Receipt Date: 20160701
  Transmission Date: 20161109
  Serious: No
  Sender: FDA-Public Use
  Company Number: US-MAYNE PHARMA-2015MYN000053

PATIENT
  Age: 72 Year
  Sex: Female

DRUGS (2)
  1. DORYX [Suspect]
     Active Substance: DOXYCYCLINE HYCLATE
     Indication: ARTHROPOD BITE
     Dosage: FOR 7-10 DAYS
     Dates: start: 201307, end: 201307
  2. DORYX [Suspect]
     Active Substance: DOXYCYCLINE HYCLATE
     Dosage: FOR 7-10 DAYS
     Dates: start: 201310, end: 201310

REACTIONS (1)
  - Deep vein thrombosis [Recovering/Resolving]

NARRATIVE: CASE EVENT DATE: 201311
